FAERS Safety Report 8844871 (Version 1)
Quarter: 2012Q4

REPORT INFORMATION
  Report Type: Spontaneous
  Country: US (occurrence: None)
  Receive Date: 20121002
  Receipt Date: 20121002
  Transmission Date: 20130627
  Serious: Yes (Other)
  Sender: FDA-Public Use
  Company Number: RB-43778-2012

PATIENT
  Age: 38 Year
  Sex: Male

DRUGS (1)
  1. SUBOXONE [Suspect]
     Indication: DRUG DEPENDENCE
     Route: 060
     Dates: start: 20120815

REACTIONS (7)
  - Off label use [None]
  - Irritability [None]
  - Insomnia [None]
  - Oedema peripheral [None]
  - Dysphonia [None]
  - Swollen tongue [None]
  - Speech disorder [None]
